FAERS Safety Report 10472689 (Version 1)
Quarter: 2014Q3

REPORT INFORMATION
  Report Type: Spontaneous
  Country: US (occurrence: None)
  Receive Date: 20140922
  Receipt Date: 20140922
  Transmission Date: 20150326
  Serious: Yes (Other)
  Sender: FDA-Public Use
  Company Number: 2014-US-011826

PATIENT
  Age: 39 Year
  Sex: Female

DRUGS (1)
  1. XYREM [Suspect]
     Active Substance: SODIUM OXYBATE
     Indication: NARCOLEPSY
     Dates: start: 201008, end: 201009

REACTIONS (2)
  - Cardiac ablation [None]
  - Pericarditis [None]

NARRATIVE: CASE EVENT DATE: 201408
